FAERS Safety Report 11094166 (Version 3)
Quarter: 2015Q2

REPORT INFORMATION
  Report Type: Spontaneous
  Country: US (occurrence: US)
  Receive Date: 20150506
  Receipt Date: 20150519
  Transmission Date: 20150821
  Serious: Yes (Other)
  Sender: FDA-Public Use
  Company Number: US-GLAXOSMITHKLINE-US2015057737

PATIENT
  Age: 62 Year
  Sex: Female

DRUGS (2)
  1. BENADRYL ALLERGY [Concomitant]
     Active Substance: DIPHENHYDRAMINE HYDROCHLORIDE
  2. ADVAIR DISKUS [Suspect]
     Active Substance: FLUTICASONE PROPIONATE\SALMETEROL XINAFOATE
     Indication: ASTHMA
     Dosage: UNK, U
     Route: 055
     Dates: start: 20150422, end: 20150427

REACTIONS (8)
  - Dysgeusia [Recovering/Resolving]
  - Tongue coated [Recovering/Resolving]
  - Tongue discolouration [Recovering/Resolving]
  - Oropharyngeal blistering [Recovering/Resolving]
  - Swollen tongue [Recovering/Resolving]
  - Glossodynia [Recovering/Resolving]
  - Tongue blistering [Recovering/Resolving]
  - Adverse reaction [Recovering/Resolving]

NARRATIVE: CASE EVENT DATE: 20150425
